FAERS Safety Report 10178722 (Version 2)
Quarter: 2014Q2

REPORT INFORMATION
  Report Type: Spontaneous
  Country: PL (occurrence: PL)
  Receive Date: 20140519
  Receipt Date: 20140526
  Transmission Date: 20141212
  Serious: No
  Sender: FDA-Public Use
  Company Number: PL-BIOGENIDEC-2014BI045943

PATIENT
  Age: 45 Year
  Sex: Female

DRUGS (1)
  1. AVONEX [Suspect]
     Indication: MULTIPLE SCLEROSIS
     Route: 030
     Dates: start: 20120125

REACTIONS (2)
  - Inappropriate schedule of drug administration [Recovered/Resolved]
  - Arthralgia [Recovered/Resolved]
